FAERS Safety Report 5551654-8 (Version None)
Quarter: 2007Q4

REPORT INFORMATION
  Report Type: 
  Country: None (occurrence: None)
  Receive Date: 20071212
  Receipt Date: 20071129
  Transmission Date: 20080405
  Serious: Yes (Hospitalization)
  Sender: FDA-Public Use
  Company Number: US-ELI_LILLY_AND_COMPANY-US200706000269

PATIENT
  Sex: Female

DRUGS (6)
  1. FORTEO [Suspect]
     Indication: OSTEOPOROSIS
     Dosage: UNK D/F, UNKNOWN
     Dates: start: 20070531
  2. FORTEO [Suspect]
  3. IRON [Concomitant]
     Dosage: UNK D/F, OTHER
  4. TPN [Concomitant]
     Dosage: UNK, UNK
     Route: 042
  5. ROXICODONE [Concomitant]
     Indication: PAIN
  6. CELEXA [Concomitant]

REACTIONS (20)
  - ACCIDENTAL OVERDOSE [None]
  - ASTHENIA [None]
  - BONE PAIN [None]
  - CATARACT OPERATION [None]
  - CENTRAL LINE INFECTION [None]
  - DEPRESSION [None]
  - DIZZINESS [None]
  - FATIGUE [None]
  - FEELING ABNORMAL [None]
  - HEADACHE [None]
  - HEART RATE INCREASED [None]
  - INFECTION [None]
  - INJECTION SITE BRUISING [None]
  - INJECTION SITE ERYTHEMA [None]
  - INJECTION SITE HAEMORRHAGE [None]
  - INJECTION SITE SWELLING [None]
  - INSOMNIA [None]
  - MALAISE [None]
  - MEDICATION ERROR [None]
  - MYALGIA [None]
